FAERS Safety Report 4906094-9 (Version None)
Quarter: 2006Q1

REPORT INFORMATION
  Report Type: 
  Country: None (occurrence: None)
  Receive Date: 20060209
  Receipt Date: 20060201
  Transmission Date: 20060701
  Serious: Yes (Other)
  Sender: FDA-Public Use
  Company Number: PHEH2006US01598

PATIENT
  Age: 74 Year
  Sex: Female

DRUGS (2)
  1. FEMARA [Suspect]
     Indication: BREAST CANCER
     Dosage: 2.5 MG, QD
     Route: 048
     Dates: start: 20030101, end: 20060101
  2. TAMOXIFEN CITRATE [Concomitant]
     Indication: BREAST CANCER
     Route: 048
     Dates: start: 19980101, end: 20030101

REACTIONS (3)
  - DIAGNOSTIC PROCEDURE [None]
  - HEPATIC CYST [None]
  - LIVER FUNCTION TEST ABNORMAL [None]
